FAERS Safety Report 20416086 (Version 1)
Quarter: 2022Q1

REPORT INFORMATION
  Report Type: Spontaneous
  Country: US (occurrence: US)
  Receive Date: 20220202
  Receipt Date: 20220202
  Transmission Date: 20220423
  Serious: No
  Sender: FDA-Public Use
  Company Number: US-LANNETT COMPANY, INC.-US-2021LAN000209

PATIENT
  Sex: Female

DRUGS (4)
  1. BACLOFEN [Suspect]
     Active Substance: BACLOFEN
     Indication: Muscle spasms
     Dosage: 20 MG, EVERY 8 HRS AS NEEDED
     Route: 048
     Dates: start: 202105
  2. BACLOFEN [Suspect]
     Active Substance: BACLOFEN
     Indication: Intervertebral disc degeneration
  3. BACLOFEN [Suspect]
     Active Substance: BACLOFEN
     Indication: Spinal osteoarthritis
  4. BACLOFEN [Suspect]
     Active Substance: BACLOFEN
     Indication: Spondylolisthesis

REACTIONS (3)
  - Abdominal pain upper [Unknown]
  - Product substitution issue [Unknown]
  - Product size issue [Unknown]
